FAERS Safety Report 10014045 (Version 1)
Quarter: 2014Q1

REPORT INFORMATION
  Report Type: Spontaneous
  Country: CH (occurrence: CH)
  Receive Date: 20140317
  Receipt Date: 20140317
  Transmission Date: 20141002
  Serious: Yes (Congenital Anomaly)
  Sender: FDA-Public Use
  Company Number: PHHY2014CH029940

PATIENT
  Sex: Male
  Weight: 2.15 kg

DRUGS (2)
  1. CO-AMOXI-MEPHA [Suspect]
     Indication: CHLAMYDIAL INFECTION
     Dosage: 625 MG, TID
     Route: 064
     Dates: start: 20130311, end: 20130318
  2. DOXYCYCLINE HYCLATE [Suspect]
     Indication: CHLAMYDIAL INFECTION
     Dosage: 100 MG, BID
     Route: 064
     Dates: start: 20130311, end: 20130318

REACTIONS (2)
  - Fallot^s tetralogy [Unknown]
  - Foetal exposure during pregnancy [Recovered/Resolved]
